FAERS Safety Report 22364387 (Version 1)
Quarter: 2023Q2

REPORT INFORMATION
  Report Type: Spontaneous
  Country: US (occurrence: US)
  Receive Date: 20230525
  Receipt Date: 20230525
  Transmission Date: 20230722
  Serious: No
  Sender: FDA-Public Use
  Company Number: US-UCBSA-2023001317

PATIENT
  Age: 31 Year
  Sex: Female
  Weight: 60.771 kg

DRUGS (3)
  1. CIMZIA [Suspect]
     Active Substance: CERTOLIZUMAB PEGOL
     Indication: Sjogren^s syndrome
     Dosage: 200 MILLIGRAM, EV 2 WEEKS(QOW)
     Route: 058
  2. CIMZIA [Suspect]
     Active Substance: CERTOLIZUMAB PEGOL
     Indication: Product use in unapproved indication
  3. PLAQUENIL [Concomitant]
     Active Substance: HYDROXYCHLOROQUINE SULFATE

REACTIONS (4)
  - COVID-19 [Unknown]
  - Treatment noncompliance [Unknown]
  - Incorrect dose administered [Unknown]
  - Product use in unapproved indication [Unknown]

NARRATIVE: CASE EVENT DATE: 20221101
